FAERS Safety Report 13018049 (Version 2)
Quarter: 2016Q4

REPORT INFORMATION
  Report Type: Spontaneous
  Country: US (occurrence: US)
  Receive Date: 20161212
  Receipt Date: 20161215
  Transmission Date: 20170207
  Serious: Yes (Life-Threatening)
  Sender: FDA-Public Use
  Company Number: US-PFIZER INC-2016570437

PATIENT
  Age: 57 Year
  Sex: Male
  Weight: 135 kg

DRUGS (1)
  1. AMLODIPINE BESILATE [Suspect]
     Active Substance: AMLODIPINE BESYLATE
     Dosage: 900 MG, SINGLE

REACTIONS (2)
  - Overdose [Unknown]
  - Hypotension [Unknown]
